FAERS Safety Report 20037903 (Version 3)
Quarter: 2022Q1

REPORT INFORMATION
  Report Type: Spontaneous
  Country: US (occurrence: US)
  Receive Date: 20211105
  Receipt Date: 20220128
  Transmission Date: 20220423
  Serious: Yes (Other)
  Sender: FDA-Public Use
  Company Number: US-BAYER-2021A241946

PATIENT
  Sex: Female

DRUGS (1)
  1. KYLEENA [Suspect]
     Active Substance: LEVONORGESTREL
     Indication: Contraception
     Dosage: 17.5?G/DAY
     Route: 015
     Dates: start: 20210622, end: 20211028

REACTIONS (4)
  - Device dislocation [Recovered/Resolved]
  - Genital haemorrhage [None]
  - Dysmenorrhoea [None]
  - Heavy menstrual bleeding [None]

NARRATIVE: CASE EVENT DATE: 20210101
